FAERS Safety Report 13642878 (Version 1)
Quarter: 2017Q2

REPORT INFORMATION
  Report Type: Spontaneous
  Country: ES (occurrence: ES)
  Receive Date: 20170612
  Receipt Date: 20170612
  Transmission Date: 20170830
  Serious: Yes (Hospitalization)
  Sender: FDA-Public Use
  Company Number: ES-B. BRAUN MEDICAL INC.-2021824

PATIENT

DRUGS (1)
  1. LIDOCAINE. [Suspect]
     Active Substance: LIDOCAINE
     Route: 042

REACTIONS (3)
  - Seizure [Recovered/Resolved]
  - Cardio-respiratory arrest [Recovered/Resolved]
  - Medication error [Recovered/Resolved]
